FAERS Safety Report 14682821 (Version 2)
Quarter: 2019Q1

REPORT INFORMATION
  Report Type: Spontaneous
  Country: US (occurrence: US)
  Receive Date: 20180327
  Receipt Date: 20190327
  Transmission Date: 20190417
  Serious: Yes (Hospitalization, Other)
  Sender: FDA-Public Use
  Company Number: US-ASTRAZENECA-2018SE36278

PATIENT
  Age: 29720 Day
  Sex: Female

DRUGS (32)
  1. NEXIUM [Suspect]
     Active Substance: ESOMEPRAZOLE MAGNESIUM
     Route: 048
     Dates: start: 201505, end: 201703
  2. SERTRALINE [Concomitant]
     Active Substance: SERTRALINE HYDROCHLORIDE
  3. NEXIUM [Suspect]
     Active Substance: ESOMEPRAZOLE MAGNESIUM
     Route: 048
     Dates: start: 200203, end: 201703
  4. NEXIUM [Suspect]
     Active Substance: ESOMEPRAZOLE MAGNESIUM
     Route: 048
     Dates: start: 20150503, end: 20170328
  5. NEXIUM [Suspect]
     Active Substance: ESOMEPRAZOLE MAGNESIUM
     Route: 065
     Dates: start: 20170215
  6. CALCIUM [Concomitant]
     Active Substance: CALCIUM
  7. ZOLOFT [Concomitant]
     Active Substance: SERTRALINE HYDROCHLORIDE
  8. ISOVUE [Concomitant]
     Active Substance: IOPAMIDOL
  9. SERTRALINE [Concomitant]
     Active Substance: SERTRALINE HYDROCHLORIDE
  10. AMLODIPINE BESYLATE. [Concomitant]
     Active Substance: AMLODIPINE BESYLATE
  11. PRILOSEC [Suspect]
     Active Substance: OMEPRAZOLE MAGNESIUM
     Route: 048
     Dates: start: 201505, end: 201703
  12. PROTONIX [Suspect]
     Active Substance: PANTOPRAZOLE SODIUM
     Route: 065
     Dates: start: 200203, end: 201703
  13. VITAMIN D3 [Concomitant]
     Active Substance: CHOLECALCIFEROL
  14. NIACIN. [Concomitant]
     Active Substance: NIACIN
  15. AMLODIPINE [Concomitant]
     Active Substance: AMLODIPINE BESYLATE
  16. FOLIC ACID. [Concomitant]
     Active Substance: FOLIC ACID
  17. HYDRALAZINE [Concomitant]
     Active Substance: HYDRALAZINE HYDROCHLORIDE
  18. ACETAMINOPHEN. [Concomitant]
     Active Substance: ACETAMINOPHEN
  19. ALLOPURINOL. [Concomitant]
     Active Substance: ALLOPURINOL
  20. NIACIN. [Concomitant]
     Active Substance: NIACIN
  21. PYRIDOXINE [Concomitant]
     Active Substance: PYRIDOXINE
  22. CALCITRIOL. [Concomitant]
     Active Substance: CALCITRIOL
  23. LEVOTHYROXINE SODIUM. [Concomitant]
     Active Substance: LEVOTHYROXINE SODIUM
  24. NIFEDIPINE. [Concomitant]
     Active Substance: NIFEDIPINE
  25. PRILOSEC [Suspect]
     Active Substance: OMEPRAZOLE MAGNESIUM
     Dosage: PRIOR TO KIDNEY INJURY
     Route: 048
  26. ZINC. [Concomitant]
     Active Substance: ZINC
  27. CALCIUM CARBONATE. [Concomitant]
     Active Substance: CALCIUM CARBONATE
  28. HEPARIN SODIUM. [Concomitant]
     Active Substance: HEPARIN SODIUM
  29. PRILOSEC [Suspect]
     Active Substance: OMEPRAZOLE MAGNESIUM
     Route: 048
     Dates: start: 200203, end: 201703
  30. SERTRALINE [Concomitant]
     Active Substance: SERTRALINE HYDROCHLORIDE
  31. SYNTHROID [Concomitant]
     Active Substance: LEVOTHYROXINE SODIUM
  32. ONDANSETRON [Concomitant]
     Active Substance: ONDANSETRON

REACTIONS (7)
  - Chronic kidney disease [Unknown]
  - Nephrogenic anaemia [Unknown]
  - Acute kidney injury [Unknown]
  - Metabolic acidosis [Unknown]
  - Renal injury [Unknown]
  - End stage renal disease [Unknown]
  - Renal failure [Unknown]

NARRATIVE: CASE EVENT DATE: 20150523
